FAERS Safety Report 18234227 (Version 2)
Quarter: 2020Q3

REPORT INFORMATION
  Report Type: Spontaneous
  Country: CN (occurrence: CN)
  Receive Date: 20200904
  Receipt Date: 20200917
  Transmission Date: 20201103
  Serious: No
  Sender: FDA-Public Use
  Company Number: CN-FRESENIUS KABI-FK202008799

PATIENT
  Age: 22 Year
  Sex: Female
  Weight: 80 kg

DRUGS (2)
  1. VOLUVEN [Suspect]
     Active Substance: HYDROXYETHYL STARCH 130/0.4
     Indication: INFERTILITY
  2. VOLUVEN [Suspect]
     Active Substance: HYDROXYETHYL STARCH 130/0.4
     Indication: POLYCYSTIC OVARIES
     Dosage: 1000 ML DAILY
     Route: 041
     Dates: start: 20200816, end: 20200818

REACTIONS (2)
  - Off label use [Recovered/Resolved]
  - Infusion related reaction [Recovered/Resolved]

NARRATIVE: CASE EVENT DATE: 20200816
